FAERS Safety Report 16003729 (Version 1)
Quarter: 2019Q1

REPORT INFORMATION
  Report Type: Spontaneous
  Country: PT (occurrence: PT)
  Receive Date: 20190226
  Receipt Date: 20190226
  Transmission Date: 20190418
  Serious: Yes (Other)
  Sender: FDA-Public Use
  Company Number: PT-ROCHE-2272733

PATIENT
  Age: 18 Year
  Sex: Female

DRUGS (1)
  1. XOLAIR [Suspect]
     Active Substance: OMALIZUMAB
     Indication: ASTHMA
     Dosage: 525 MG, UNK (EVERY 2 WEEKS)
     Route: 065

REACTIONS (4)
  - Administration site erythema [Unknown]
  - Administration site papule [Unknown]
  - Asthmatic crisis [Unknown]
  - Pruritus [Unknown]
